FAERS Safety Report 10484357 (Version 2)
Quarter: 2014Q4

REPORT INFORMATION
  Report Type: Report from Study
  Country: US (occurrence: US)
  Receive Date: 20140930
  Receipt Date: 20141010
  Transmission Date: 20150528
  Serious: Yes (Death)
  Sender: FDA-Public Use
  Company Number: US-ACTELION-A-NJ2014-105902

PATIENT
  Age: 63 Year
  Sex: Female

DRUGS (3)
  1. VENTAVIS [Suspect]
     Active Substance: ILOPROST
     Dosage: 6-9 TIMES /DAY
     Route: 055
     Dates: start: 20110819
  2. REVATIO [Concomitant]
     Active Substance: SILDENAFIL CITRATE
  3. VENTAVIS [Suspect]
     Active Substance: ILOPROST
     Indication: PULMONARY ARTERIAL HYPERTENSION
     Dosage: 5 MCG, 7  X DAILY
     Route: 055
     Dates: start: 20111101, end: 20140902

REACTIONS (3)
  - Cardiac sarcoidosis [Fatal]
  - Systemic sclerosis [Fatal]
  - Pulmonary sarcoidosis [Fatal]
